FAERS Safety Report 8381691-X (Version None)
Quarter: 2012Q2

REPORT INFORMATION
  Report Type: 
  Country: None (occurrence: None)
  Receive Date: 20120524
  Receipt Date: 20120510
  Transmission Date: 20120825
  Serious: Yes (Other)
  Sender: FDA-Public Use
  Company Number: IT-RANBAXY-2012R1-56388

PATIENT
  Age: 48 Year
  Sex: Male

DRUGS (2)
  1. BUPIVACAINE HCL [Suspect]
     Indication: SPINAL ANAESTHESIA
     Dosage: UNK
     Route: 050
  2. MIDAZOLAM [Suspect]
     Indication: SPINAL ANAESTHESIA
     Dosage: UNK
     Route: 050

REACTIONS (5)
  - BLOOD PRESSURE SYSTOLIC DECREASED [None]
  - VOMITING [None]
  - BRADYCARDIA [None]
  - DYSPNOEA [None]
  - PALLOR [None]
